FAERS Safety Report 10363586 (Version 2)
Quarter: 2014Q4

REPORT INFORMATION
  Report Type: Spontaneous
  Country: US (occurrence: US)
  Receive Date: 20140805
  Receipt Date: 20141121
  Transmission Date: 20150528
  Serious: Yes (Death, Congenital Anomaly, Other)
  Sender: FDA-Public Use
  Company Number: US-PFIZER INC-2014215121

PATIENT
  Sex: Male

DRUGS (1)
  1. ZOLOFT [Suspect]
     Active Substance: SERTRALINE HYDROCHLORIDE
     Indication: DEPRESSION
     Dosage: UNK
     Route: 064
     Dates: start: 1999, end: 2000

REACTIONS (6)
  - Hydrocephalus [Unknown]
  - Maternal exposure during pregnancy [Fatal]
  - Cardiac disorder [Unknown]
  - Iniencephaly [Unknown]
  - Spina bifida [Unknown]
  - Neural tube defect [Fatal]

NARRATIVE: CASE EVENT DATE: 2000
